FAERS Safety Report 17849269 (Version 1)
Quarter: 2020Q2

REPORT INFORMATION
  Report Type: Report from Study
  Country: NL (occurrence: NL)
  Receive Date: 20200602
  Receipt Date: 20200602
  Transmission Date: 20200714
  Serious: Yes (Other)
  Sender: FDA-Public Use
  Company Number: NL-ASTELLAS-2020US017988

PATIENT
  Sex: Female

DRUGS (3)
  1. AMPHOTERICIN B, LIPOSOME [Suspect]
     Active Substance: AMPHOTERICIN B
     Indication: CANDIDA INFECTION
     Dosage: 0.1 MILLIGRAM PER MILLILITRE, QID (INTRA-CATHETER)
     Route: 050
  2. FLUCONAZOLE. [Concomitant]
     Active Substance: FLUCONAZOLE
     Indication: CANDIDA INFECTION
     Dosage: 150 MG, EVERY OTHER DAY (150 MG, QOD (EVERY 48 HOURS IN THE NIGHT EXCHANGE))
     Route: 033
  3. FLUCYTOSINE. [Concomitant]
     Active Substance: FLUCYTOSINE
     Indication: CANDIDA INFECTION
     Dosage: 500 MG, TWICE DAILY (500 MG, BID   )
     Route: 048

REACTIONS (1)
  - Drug ineffective [Not Recovered/Not Resolved]
